FAERS Safety Report 10898906 (Version 2)
Quarter: 2015Q1

REPORT INFORMATION
  Report Type: Spontaneous
  Country: US (occurrence: US)
  Receive Date: 20150309
  Receipt Date: 20150317
  Transmission Date: 20150721
  Serious: Yes (Other)
  Sender: FDA-Public Use
  Company Number: US-TEVA-544918USA

PATIENT
  Age: 56 Year
  Sex: Female
  Weight: 62.65 kg

DRUGS (1)
  1. CELECOXIB. [Suspect]
     Active Substance: CELECOXIB
     Indication: OSTEOARTHRITIS
     Dosage: 400 MILLIGRAM DAILY;
     Route: 065
     Dates: start: 20141230

REACTIONS (9)
  - Product substitution issue [Unknown]
  - Abasia [Unknown]
  - Drug ineffective [Unknown]
  - Motor dysfunction [Unknown]
  - Abdominal discomfort [Unknown]
  - Gastrooesophageal reflux disease [Unknown]
  - Activities of daily living impaired [Unknown]
  - Malaise [Unknown]
  - Pain [Unknown]

NARRATIVE: CASE EVENT DATE: 201412
